FAERS Safety Report 16738720 (Version 2)
Quarter: 2019Q3

REPORT INFORMATION
  Report Type: Spontaneous
  Country: AU (occurrence: AU)
  Receive Date: 20190826
  Receipt Date: 20190828
  Transmission Date: 20191005
  Serious: Yes (Other)
  Sender: FDA-Public Use
  Company Number: AU-MYLANLABS-2019M1078761

PATIENT
  Age: 62 Year
  Sex: Female

DRUGS (2)
  1. ASMOL CFC FREE [Suspect]
     Active Substance: ALBUTEROL SULFATE
     Indication: ASTHMA
     Dosage: 12 PUFFS
  2. ASMOL CFC FREE [Suspect]
     Active Substance: ALBUTEROL SULFATE
     Dosage: 6 PUFFS, QID, PRN

REACTIONS (7)
  - Dizziness [Recovering/Resolving]
  - Dysphonia [Not Recovered/Not Resolved]
  - Product contamination [Recovering/Resolving]
  - Oropharyngeal pain [Not Recovered/Not Resolved]
  - Cardiac disorder [Unknown]
  - Choking [Recovering/Resolving]
  - Oropharyngeal discomfort [Recovering/Resolving]

NARRATIVE: CASE EVENT DATE: 20190816
